FAERS Safety Report 7681095-9 (Version None)
Quarter: 2011Q3

REPORT INFORMATION
  Report Type: 
  Country: None (occurrence: None)
  Receive Date: 20110812
  Receipt Date: 20110811
  Transmission Date: 20111222
  Serious: No
  Sender: FDA-Public Use
  Company Number: US-PFIZER INC-2011185052

PATIENT
  Sex: Male

DRUGS (1)
  1. LYRICA [Suspect]
     Indication: NEUROPATHY PERIPHERAL
     Dosage: UNK

REACTIONS (6)
  - DRY MOUTH [None]
  - DIZZINESS [None]
  - BURNING SENSATION [None]
  - MUSCLE SPASMS [None]
  - PHOTOPHOBIA [None]
  - RASH [None]
